FAERS Safety Report 9426898 (Version 1)
Quarter: 2013Q3

REPORT INFORMATION
  Report Type: Spontaneous
  Country: US (occurrence: None)
  Receive Date: 20130729
  Receipt Date: 20130729
  Transmission Date: 20140515
  Serious: Yes (Life-Threatening)
  Sender: FDA-Public Use
  Company Number: None

PATIENT
  Age: 70 Year
  Sex: Female
  Weight: 63.05 kg

DRUGS (5)
  1. ATENOLOL [Suspect]
     Indication: BLOOD PRESSURE INCREASED
     Dosage: 1/2 TAB
     Route: 048
     Dates: start: 200909, end: 20130702
  2. ADVAIR [Concomitant]
  3. D3 [Concomitant]
  4. CRANBERRY [Concomitant]
  5. NAPROXIN [Concomitant]

REACTIONS (4)
  - Hypoaesthesia oral [None]
  - Dyspnoea [None]
  - Product physical issue [None]
  - Product substitution issue [None]
